FAERS Safety Report 8477765-5 (Version None)
Quarter: 2012Q2

REPORT INFORMATION
  Report Type: 
  Country: None (occurrence: None)
  Receive Date: 20120629
  Receipt Date: 20111003
  Transmission Date: 20120825
  Serious: No
  Sender: FDA-Public Use
  Company Number: US-GLAXOSMITHKLINE-A0946801A

PATIENT
  Age: 59 Year
  Sex: Female

DRUGS (8)
  1. NEBULIZER [Concomitant]
  2. SPIRIVA [Concomitant]
  3. TRIBENZOR [Concomitant]
  4. SYMBICORT [Concomitant]
  5. VENTOLIN [Suspect]
     Indication: CHRONIC OBSTRUCTIVE PULMONARY DISEASE
     Dosage: 1PUFF AS REQUIRED
     Route: 055
     Dates: start: 20110801
  6. CRESTOR [Concomitant]
  7. ASPIRIN [Concomitant]
  8. FISH OIL [Concomitant]

REACTIONS (3)
  - THROAT IRRITATION [None]
  - BLISTER [None]
  - LIP ULCERATION [None]
